FAERS Safety Report 8163294-5 (Version None)
Quarter: 2012Q1

REPORT INFORMATION
  Report Type: 
  Country: None (occurrence: None)
  Receive Date: 20120224
  Receipt Date: 20110325
  Transmission Date: 20120608
  Serious: No
  Sender: FDA-Public Use
  Company Number: US-PFIZER INC-K201100339

PATIENT
  Age: 85 Year
  Sex: Female
  Weight: 56.236 kg

DRUGS (4)
  1. ASPIRIN [Concomitant]
     Dosage: UNK
  2. FLECTOR [Suspect]
     Indication: BACK PAIN
     Dosage: 1 PATCH, QD
     Route: 061
     Dates: start: 20110314, end: 20110315
  3. FLECTOR [Suspect]
     Dosage: 1 PATCH, Q 12 H
     Route: 061
     Dates: start: 20110316, end: 20110322
  4. VITAMIN TAB [Concomitant]
     Dosage: UNK

REACTIONS (2)
  - APPLICATION SITE RASH [None]
  - APPLICATION SITE PRURITUS [None]
